FAERS Safety Report 9712814 (Version 2)
Quarter: 2014Q4

REPORT INFORMATION
  Report Type: Spontaneous
  Country: US (occurrence: US)
  Receive Date: 20131126
  Receipt Date: 20141205
  Transmission Date: 20150529
  Serious: No
  Sender: FDA-Public Use
  Company Number: US-BRISTOL-MYERS SQUIBB COMPANY-18917732

PATIENT
  Age: 63 Year
  Sex: Male
  Weight: 117.91 kg

DRUGS (1)
  1. BYDUREON [Suspect]
     Active Substance: EXENATIDE
     Indication: TYPE 2 DIABETES MELLITUS
     Dosage: 2-3 MONTHS AGO IN FEB2013
     Route: 058
     Dates: start: 201302

REACTIONS (6)
  - Dizziness [Unknown]
  - Injection site nodule [Unknown]
  - Nausea [Unknown]
  - Injection site swelling [Unknown]
  - Injection site pain [Unknown]
  - Glycosylated haemoglobin increased [Unknown]

NARRATIVE: CASE EVENT DATE: 201302
